FAERS Safety Report 21390833 (Version 5)
Quarter: 2022Q4

REPORT INFORMATION
  Report Type: Spontaneous
  Country: US (occurrence: US)
  Receive Date: 20220929
  Receipt Date: 20221104
  Transmission Date: 20230113
  Serious: No
  Sender: FDA-Public Use
  Company Number: US-PFIZER INC-PV202200072351

PATIENT
  Age: 65 Year
  Sex: Male

DRUGS (1)
  1. INLYTA [Suspect]
     Active Substance: AXITINIB
     Dosage: UNK

REACTIONS (8)
  - Dysphonia [Unknown]
  - Arthralgia [Unknown]
  - Aphonia [Unknown]
  - Urinary tract infection [Unknown]
  - Dysuria [Unknown]
  - Micturition urgency [Unknown]
  - Stomatitis [Recovering/Resolving]
  - Oral pain [Recovering/Resolving]
